FAERS Safety Report 14131619 (Version 1)
Quarter: 2017Q4

REPORT INFORMATION
  Report Type: Spontaneous
  Country: GB (occurrence: GB)
  Receive Date: 20171026
  Receipt Date: 20171026
  Transmission Date: 20180321
  Serious: Yes (Hospitalization)
  Sender: FDA-Public Use
  Company Number: GB-GILEAD-2017-0301089

PATIENT
  Age: 83 Year
  Sex: Male
  Weight: 82.9 kg

DRUGS (7)
  1. AMLODIPINE [Concomitant]
     Active Substance: AMLODIPINE BESYLATE
  2. RANOLAZINE. [Suspect]
     Active Substance: RANOLAZINE
     Indication: ANGINA PECTORIS
     Route: 048
     Dates: start: 20170926, end: 20170928
  3. ATORVASTATIN [Concomitant]
     Active Substance: ATORVASTATIN
  4. CLOPIDOGREL [Concomitant]
     Active Substance: CLOPIDOGREL BISULFATE
  5. BUMETANIDE. [Concomitant]
     Active Substance: BUMETANIDE
  6. BISOPROLOL [Concomitant]
     Active Substance: BISOPROLOL
  7. CANDESARTAN. [Concomitant]
     Active Substance: CANDESARTAN

REACTIONS (12)
  - Leukocytosis [Recovering/Resolving]
  - Chills [Recovering/Resolving]
  - Hypotension [Recovering/Resolving]
  - Confusional state [Recovering/Resolving]
  - Vomiting [Recovering/Resolving]
  - C-reactive protein increased [Recovering/Resolving]
  - Off label use [Recovered/Resolved]
  - Pyrexia [Recovering/Resolving]
  - Blood sodium decreased [Recovering/Resolving]
  - Somnolence [Recovering/Resolving]
  - Balance disorder [Recovering/Resolving]
  - Nausea [Recovering/Resolving]

NARRATIVE: CASE EVENT DATE: 20170926
